FAERS Safety Report 11211003 (Version 1)
Quarter: 2015Q2

REPORT INFORMATION
  Report Type: Report from Study
  Country: CL (occurrence: CL)
  Receive Date: 20150623
  Receipt Date: 20150623
  Transmission Date: 20150821
  Serious: Yes (Hospitalization, Disabling, Other)
  Sender: FDA-Public Use
  Company Number: CL-ROCHE-1578724

PATIENT
  Age: 43 Year
  Sex: Female

DRUGS (3)
  1. OXALIPLATIN. [Suspect]
     Active Substance: OXALIPLATIN
     Indication: COLORECTAL CANCER
     Route: 042
     Dates: start: 20150401
  2. XELODA [Suspect]
     Active Substance: CAPECITABINE
     Indication: COLORECTAL CANCER
     Dosage: 14 DAYS PER CYCLE
     Route: 048
     Dates: start: 20150401
  3. XELODA [Suspect]
     Active Substance: CAPECITABINE
     Dosage: 2 CYCLE
     Route: 048
     Dates: start: 20150429, end: 20150511

REACTIONS (18)
  - Pain in extremity [Not Recovered/Not Resolved]
  - Gastroenteritis [Not Recovered/Not Resolved]
  - Renal failure [Unknown]
  - Off label use [Unknown]
  - Abdominal pain upper [Recovered/Resolved]
  - Swelling [Recovered/Resolved]
  - Chills [Recovered/Resolved]
  - Nausea [Unknown]
  - Stoma site infection [Recovered/Resolved]
  - Vomiting [Recovered/Resolved]
  - Anuria [Recovered/Resolved]
  - Dehydration [Unknown]
  - Tachycardia [Recovered/Resolved]
  - Enteritis infectious [Not Recovered/Not Resolved]
  - Blood creatinine increased [Unknown]
  - Bone pain [Not Recovered/Not Resolved]
  - Nasopharyngitis [Recovered/Resolved]
  - Fatigue [Recovered/Resolved]

NARRATIVE: CASE EVENT DATE: 201504
